FAERS Safety Report 17259225 (Version 2)
Quarter: 2020Q1

REPORT INFORMATION
  Report Type: Spontaneous
  Country: US (occurrence: US)
  Receive Date: 20200110
  Receipt Date: 20200212
  Transmission Date: 20200409
  Serious: Yes (Other)
  Sender: FDA-Public Use
  Company Number: US-VERTEX PHARMACEUTICALS-2020-000139

PATIENT
  Age: 33 Year
  Sex: Female

DRUGS (20)
  1. PHENERGAN [Concomitant]
     Active Substance: PROMETHAZINE HYDROCHLORIDE
     Dosage: 12.5 MG, EVERY 6 HRS AS NEEDED
     Route: 048
     Dates: start: 20180306
  2. OXYCONTIN [Concomitant]
     Active Substance: OXYCODONE HYDROCHLORIDE
     Dosage: 1 DOSAGE FORM EVERY 12 HRS
     Route: 048
     Dates: start: 20200108, end: 20200207
  3. ZITHROMAX [Concomitant]
     Active Substance: AZITHROMYCIN DIHYDRATE
     Dosage: 1 DOSAGE FORM, 3 TIMES A WEEK
     Route: 048
     Dates: start: 20180815
  4. KLONOPIN [Concomitant]
     Active Substance: CLONAZEPAM
     Indication: ANXIETY
     Dosage: 1/2 TO 1 TABLET, TID
     Route: 048
     Dates: start: 20200203
  5. VITAMIN D2 [Concomitant]
     Active Substance: ERGOCALCIFEROL
     Dosage: 1 DOSAGE FORM, ONCE A WEEK
     Route: 048
     Dates: start: 20180919
  6. FLEXERIL [CEFIXIME] [Concomitant]
     Active Substance: CEFIXIME
     Indication: MUSCLE SPASMS
     Dosage: 1 DOSAGE FORM, PRN
     Dates: start: 20181126
  7. ZYLOPRIM [Concomitant]
     Active Substance: ALLOPURINOL
     Dosage: 100 MILLIGRAM DAILY
     Route: 048
  8. FLONASE [MOMETASONE FUROATE] [Concomitant]
     Active Substance: MOMETASONE FUROATE
     Dosage: 1 MILLILITER
     Route: 045
     Dates: start: 20190926
  9. TRIKAFTA [Suspect]
     Active Substance: ELEXACAFTOR\IVACAFTOR\TEZACAFTOR
     Dosage: 2 TABS AM OR FULL DOSE EVERY OTHER DAY
     Route: 048
     Dates: start: 20200102
  10. BETHKIS [Concomitant]
     Active Substance: TOBRAMYCIN
     Dosage: 4 MILLILITER
     Route: 055
     Dates: start: 20180518
  11. XOPENEX [Concomitant]
     Active Substance: LEVALBUTEROL HYDROCHLORIDE
     Indication: WHEEZING
     Dosage: 3 MILLILITER EVERY 4 HOURS AS NEEDED
     Dates: start: 20180613
  12. CREON [Concomitant]
     Active Substance: PANCRELIPASE AMYLASE\PANCRELIPASE LIPASE\PANCRELIPASE PROTEASE
     Dosage: 6-7 CAPSULE WITH MEALS
     Route: 048
     Dates: start: 20190110
  13. TRIKAFTA [Suspect]
     Active Substance: ELEXACAFTOR\IVACAFTOR\TEZACAFTOR
     Indication: CYSTIC FIBROSIS
     Dosage: NORMAL DOSE
     Route: 048
     Dates: start: 20191209, end: 20191225
  14. XOPENEX HFA [Concomitant]
     Active Substance: LEVALBUTEROL TARTRATE
     Dosage: 2 PUFFS, 2-4 TIMES DAILY
     Dates: start: 20180613
  15. MELATONIN [Concomitant]
     Active Substance: MELATONIN
     Dosage: 2 DOSAGE FORM NIGHTLY
     Route: 048
     Dates: start: 20181025
  16. AMBIEN CR [Concomitant]
     Active Substance: ZOLPIDEM TARTRATE
     Dosage: 6.25 MILLIGRAM NIGHTLY
     Route: 048
  17. PULMOZYME [Concomitant]
     Active Substance: DORNASE ALFA
     Dosage: 2.5 MILLILITER INTO LUNGS
     Dates: start: 20181221
  18. CYMBALTA [Concomitant]
     Active Substance: DULOXETINE HYDROCHLORIDE
     Dosage: 1 DOSAGE FORM, QD
     Route: 048
     Dates: start: 20191213
  19. TOPAMAX [Concomitant]
     Active Substance: TOPIRAMATE
     Dosage: 1 DOSAGE FORM, BID
     Route: 048
     Dates: start: 20191213
  20. PERCOCET [Concomitant]
     Active Substance: ACETAMINOPHEN\OXYCODONE HYDROCHLORIDE
     Indication: PAIN
     Dosage: 1 DOSAGE FORM EVERY 6 HRS AS NEEDED
     Route: 048
     Dates: start: 20200108, end: 20200207

REACTIONS (6)
  - Alanine aminotransferase increased [Recovering/Resolving]
  - Chest pain [Recovered/Resolved]
  - Aspartate aminotransferase increased [Recovering/Resolving]
  - Sinus tachycardia [Recovered/Resolved]
  - Blood alkaline phosphatase increased [Recovering/Resolving]
  - Ovarian cyst ruptured [Unknown]

NARRATIVE: CASE EVENT DATE: 20191225
